FAERS Safety Report 5120253-4 (Version None)
Quarter: 2006Q4

REPORT INFORMATION
  Report Type: 
  Country: None (occurrence: None)
  Receive Date: 20061004
  Receipt Date: 20060921
  Transmission Date: 20070319
  Serious: Yes (Hospitalization)
  Sender: FDA-Public Use
  Company Number: US-AMGEN-US194464

PATIENT
  Sex: Female
  Weight: 68.1 kg

DRUGS (15)
  1. NEULASTA [Suspect]
     Indication: CHEMOTHERAPY
     Route: 058
  2. ALOXI [Concomitant]
     Route: 065
  3. DECADRON [Concomitant]
     Route: 065
  4. CYTOXAN [Concomitant]
     Route: 065
  5. FLUOROURACIL [Concomitant]
     Route: 065
  6. EPIRUBICIN [Concomitant]
     Route: 065
  7. DEXAMETHASONE TAB [Concomitant]
     Route: 065
  8. LORAZEPAM [Concomitant]
     Route: 065
  9. DOCETAXEL [Concomitant]
     Route: 065
  10. PALONOSETRON HYDROCHLORIDE [Concomitant]
     Route: 065
  11. TAXOTERE [Concomitant]
     Route: 065
  12. ZOLOFT [Concomitant]
     Route: 065
  13. LEVOTHYROXINE SODIUM [Concomitant]
     Route: 065
  14. MULTIVITAMIN [Concomitant]
     Route: 065
  15. VITAMIN B COMPLEX CAP [Concomitant]
     Route: 065

REACTIONS (14)
  - BLEPHARITIS [None]
  - BLOOD COUNT ABNORMAL [None]
  - DEHYDRATION [None]
  - EYE SWELLING [None]
  - GINGIVAL DISCOLOURATION [None]
  - HYPERSENSITIVITY [None]
  - LIVER DISORDER [None]
  - LYMPHOEDEMA [None]
  - MEMORY IMPAIRMENT [None]
  - NAIL DISORDER [None]
  - OEDEMA PERIPHERAL [None]
  - PAIN [None]
  - PYREXIA [None]
  - VISION BLURRED [None]
